FAERS Safety Report 10406203 (Version 1)
Quarter: 2014Q1

REPORT INFORMATION
  Report Type: Spontaneous
  Country: US (occurrence: None)
  Receive Date: 20140228
  Receipt Date: 20140228
  Transmission Date: 20141002
  Serious: No
  Sender: FDA-Public Use
  Company Number: 224730LEO

PATIENT
  Sex: Female

DRUGS (2)
  1. PICATO (INGENOL MEBUTATE) (0.015 %, GEL) [Suspect]
     Indication: ACTINIC KERATOSIS
  2. PICATO (INGENOL MEBUTATE) (0.015 %, GEL) [Suspect]
     Indication: ACTINIC KERATOSIS

REACTIONS (6)
  - Application site pain [None]
  - Application site exfoliation [None]
  - Application site pain [None]
  - Rash generalised [None]
  - Inappropriate schedule of drug administration [None]
  - Drug administered at inappropriate site [None]
